FAERS Safety Report 26035686 (Version 3)
Quarter: 2025Q4

REPORT INFORMATION
  Report Type: Spontaneous
  Country: EU (occurrence: EU)
  Receive Date: 20251112
  Receipt Date: 20251210
  Transmission Date: 20260117
  Serious: Yes (Congenital Anomaly, Other)
  Sender: MYLAN
  Company Number: EU-EMB-M202407040-1

PATIENT
  Sex: Female

DRUGS (92)
  1. PANTOPRAZOLE [Suspect]
     Active Substance: PANTOPRAZOLE
     Indication: Gastritis prophylaxis
     Dosage: 20 MILLIGRAM, PRN (AS NEEDED THROUGHOUT PREGNANCY)
  2. PANTOPRAZOLE [Suspect]
     Active Substance: PANTOPRAZOLE
     Dosage: 20 MILLIGRAM, PRN (AS NEEDED THROUGHOUT PREGNANCY)
  3. PANTOPRAZOLE [Suspect]
     Active Substance: PANTOPRAZOLE
     Dosage: 20 MILLIGRAM, PRN (AS NEEDED THROUGHOUT PREGNANCY)
     Route: 064
  4. PANTOPRAZOLE [Suspect]
     Active Substance: PANTOPRAZOLE
     Dosage: 20 MILLIGRAM, PRN (AS NEEDED THROUGHOUT PREGNANCY)
     Route: 064
  5. PANTOPRAZOLE [Suspect]
     Active Substance: PANTOPRAZOLE
     Dosage: 20 MILLIGRAM, PRN (AS NEEDED THROUGHOUT PREGNANCY)
  6. PANTOPRAZOLE [Suspect]
     Active Substance: PANTOPRAZOLE
     Dosage: 20 MILLIGRAM, PRN (AS NEEDED THROUGHOUT PREGNANCY)
  7. PANTOPRAZOLE [Suspect]
     Active Substance: PANTOPRAZOLE
     Dosage: 20 MILLIGRAM, PRN (AS NEEDED THROUGHOUT PREGNANCY)
     Route: 064
  8. PANTOPRAZOLE [Suspect]
     Active Substance: PANTOPRAZOLE
     Dosage: 20 MILLIGRAM, PRN (AS NEEDED THROUGHOUT PREGNANCY)
     Route: 064
  9. SERTRALINE [Suspect]
     Active Substance: SERTRALINE HYDROCHLORIDE
     Indication: Depression
     Dosage: 200 MILLIGRAM, QD
     Dates: start: 202312, end: 202409
  10. SERTRALINE [Suspect]
     Active Substance: SERTRALINE HYDROCHLORIDE
     Dosage: 200 MILLIGRAM, QD
     Dates: start: 202312, end: 202409
  11. SERTRALINE [Suspect]
     Active Substance: SERTRALINE HYDROCHLORIDE
     Dosage: 200 MILLIGRAM, QD
     Route: 064
     Dates: start: 202312, end: 202409
  12. SERTRALINE [Suspect]
     Active Substance: SERTRALINE HYDROCHLORIDE
     Dosage: 200 MILLIGRAM, QD
     Route: 064
     Dates: start: 202312, end: 202409
  13. SERTRALINE [Suspect]
     Active Substance: SERTRALINE HYDROCHLORIDE
     Dosage: 200 MILLIGRAM, QD
     Dates: start: 202312, end: 202409
  14. SERTRALINE [Suspect]
     Active Substance: SERTRALINE HYDROCHLORIDE
     Dosage: 200 MILLIGRAM, QD
     Dates: start: 202312, end: 202409
  15. SERTRALINE [Suspect]
     Active Substance: SERTRALINE HYDROCHLORIDE
     Dosage: 200 MILLIGRAM, QD
     Route: 064
     Dates: start: 202312, end: 202409
  16. SERTRALINE [Suspect]
     Active Substance: SERTRALINE HYDROCHLORIDE
     Dosage: 200 MILLIGRAM, QD
     Route: 064
     Dates: start: 202312, end: 202409
  17. IPRATROPIUM [Suspect]
     Active Substance: IPRATROPIUM
     Indication: Cystic fibrosis
     Dosage: 250 MICROGRAM
     Dates: start: 202312, end: 202409
  18. IPRATROPIUM [Suspect]
     Active Substance: IPRATROPIUM
     Dosage: 250 MICROGRAM
     Dates: start: 202312, end: 202409
  19. IPRATROPIUM [Suspect]
     Active Substance: IPRATROPIUM
     Dosage: 250 MICROGRAM
     Route: 064
     Dates: start: 202312, end: 202409
  20. IPRATROPIUM [Suspect]
     Active Substance: IPRATROPIUM
     Dosage: 250 MICROGRAM
     Route: 064
     Dates: start: 202312, end: 202409
  21. IPRATROPIUM [Suspect]
     Active Substance: IPRATROPIUM
     Dosage: 250 MICROGRAM
     Dates: start: 202312, end: 202409
  22. IPRATROPIUM [Suspect]
     Active Substance: IPRATROPIUM
     Dosage: 250 MICROGRAM
     Dates: start: 202312, end: 202409
  23. IPRATROPIUM [Suspect]
     Active Substance: IPRATROPIUM
     Dosage: 250 MICROGRAM
     Route: 064
     Dates: start: 202312, end: 202409
  24. IPRATROPIUM [Suspect]
     Active Substance: IPRATROPIUM
     Dosage: 250 MICROGRAM
     Route: 064
     Dates: start: 202312, end: 202409
  25. FLUTIFORM [Suspect]
     Active Substance: FLUTIFORM
     Indication: Cystic fibrosis
     Dosage: 125/5 ?G/D
     Dates: start: 202312, end: 202409
  26. FLUTIFORM [Suspect]
     Active Substance: FLUTIFORM
     Dosage: 125/5 ?G/D
     Dates: start: 202312, end: 202409
  27. FLUTIFORM [Suspect]
     Active Substance: FLUTIFORM
     Dosage: 125/5 ?G/D
     Route: 064
     Dates: start: 202312, end: 202409
  28. FLUTIFORM [Suspect]
     Active Substance: FLUTIFORM
     Dosage: 125/5 ?G/D
     Route: 064
     Dates: start: 202312, end: 202409
  29. FLUTIFORM [Suspect]
     Active Substance: FLUTIFORM
     Dosage: 125/5 ?G/D
     Dates: start: 202312, end: 202409
  30. FLUTIFORM [Suspect]
     Active Substance: FLUTIFORM
     Dosage: 125/5 ?G/D
     Dates: start: 202312, end: 202409
  31. FLUTIFORM [Suspect]
     Active Substance: FLUTIFORM
     Dosage: 125/5 ?G/D
     Route: 064
     Dates: start: 202312, end: 202409
  32. FLUTIFORM [Suspect]
     Active Substance: FLUTIFORM
     Dosage: 125/5 ?G/D
     Route: 064
     Dates: start: 202312, end: 202409
  33. SPIRIVA [Suspect]
     Active Substance: TIOTROPIUM BROMIDE MONOHYDRATE
     Indication: Cystic fibrosis
     Dosage: 1-2 UNITS PER DAY/CORRESPONDS TO 2.5-5 ?G/D
     Dates: start: 202312, end: 202409
  34. SPIRIVA [Suspect]
     Active Substance: TIOTROPIUM BROMIDE MONOHYDRATE
     Dosage: 1-2 UNITS PER DAY/CORRESPONDS TO 2.5-5 ?G/D
     Dates: start: 202312, end: 202409
  35. SPIRIVA [Suspect]
     Active Substance: TIOTROPIUM BROMIDE MONOHYDRATE
     Dosage: 1-2 UNITS PER DAY/CORRESPONDS TO 2.5-5 ?G/D
     Route: 064
     Dates: start: 202312, end: 202409
  36. SPIRIVA [Suspect]
     Active Substance: TIOTROPIUM BROMIDE MONOHYDRATE
     Dosage: 1-2 UNITS PER DAY/CORRESPONDS TO 2.5-5 ?G/D
     Route: 064
     Dates: start: 202312, end: 202409
  37. SPIRIVA [Suspect]
     Active Substance: TIOTROPIUM BROMIDE MONOHYDRATE
     Dosage: 1-2 UNITS PER DAY/CORRESPONDS TO 2.5-5 ?G/D
     Dates: start: 202312, end: 202409
  38. SPIRIVA [Suspect]
     Active Substance: TIOTROPIUM BROMIDE MONOHYDRATE
     Dosage: 1-2 UNITS PER DAY/CORRESPONDS TO 2.5-5 ?G/D
     Dates: start: 202312, end: 202409
  39. SPIRIVA [Suspect]
     Active Substance: TIOTROPIUM BROMIDE MONOHYDRATE
     Dosage: 1-2 UNITS PER DAY/CORRESPONDS TO 2.5-5 ?G/D
     Route: 064
     Dates: start: 202312, end: 202409
  40. SPIRIVA [Suspect]
     Active Substance: TIOTROPIUM BROMIDE MONOHYDRATE
     Dosage: 1-2 UNITS PER DAY/CORRESPONDS TO 2.5-5 ?G/D
     Route: 064
     Dates: start: 202312, end: 202409
  41. FEXOFENADINE [Suspect]
     Active Substance: FEXOFENADINE HYDROCHLORIDE
     Indication: Seasonal allergy
     Dosage: 120 MILLIGRAM, PRN (AS NEEDED THROUGHOUT PREGNANCY)
  42. FEXOFENADINE [Suspect]
     Active Substance: FEXOFENADINE HYDROCHLORIDE
     Dosage: 120 MILLIGRAM, PRN (AS NEEDED THROUGHOUT PREGNANCY)
  43. FEXOFENADINE [Suspect]
     Active Substance: FEXOFENADINE HYDROCHLORIDE
     Dosage: 120 MILLIGRAM, PRN (AS NEEDED THROUGHOUT PREGNANCY)
     Route: 064
  44. FEXOFENADINE [Suspect]
     Active Substance: FEXOFENADINE HYDROCHLORIDE
     Dosage: 120 MILLIGRAM, PRN (AS NEEDED THROUGHOUT PREGNANCY)
     Route: 064
  45. FEXOFENADINE [Suspect]
     Active Substance: FEXOFENADINE HYDROCHLORIDE
     Dosage: 120 MILLIGRAM, PRN (AS NEEDED THROUGHOUT PREGNANCY)
  46. FEXOFENADINE [Suspect]
     Active Substance: FEXOFENADINE HYDROCHLORIDE
     Dosage: 120 MILLIGRAM, PRN (AS NEEDED THROUGHOUT PREGNANCY)
  47. FEXOFENADINE [Suspect]
     Active Substance: FEXOFENADINE HYDROCHLORIDE
     Dosage: 120 MILLIGRAM, PRN (AS NEEDED THROUGHOUT PREGNANCY)
     Route: 064
  48. FEXOFENADINE [Suspect]
     Active Substance: FEXOFENADINE HYDROCHLORIDE
     Dosage: 120 MILLIGRAM, PRN (AS NEEDED THROUGHOUT PREGNANCY)
     Route: 064
  49. ELEXACAFTOR\IVACAFTOR\TEZACAFTOR [Suspect]
     Active Substance: ELEXACAFTOR\IVACAFTOR\TEZACAFTOR
     Indication: Cystic fibrosis
     Dosage: 450 MILLIGRAM, QD (TOTAL OF ALL ACTIVE INGREDIENTS)
     Dates: start: 202312, end: 202409
  50. ELEXACAFTOR\IVACAFTOR\TEZACAFTOR [Suspect]
     Active Substance: ELEXACAFTOR\IVACAFTOR\TEZACAFTOR
     Dosage: 450 MILLIGRAM, QD (TOTAL OF ALL ACTIVE INGREDIENTS)
     Dates: start: 202312, end: 202409
  51. ELEXACAFTOR\IVACAFTOR\TEZACAFTOR [Suspect]
     Active Substance: ELEXACAFTOR\IVACAFTOR\TEZACAFTOR
     Dosage: 450 MILLIGRAM, QD (TOTAL OF ALL ACTIVE INGREDIENTS)
     Route: 064
     Dates: start: 202312, end: 202409
  52. ELEXACAFTOR\IVACAFTOR\TEZACAFTOR [Suspect]
     Active Substance: ELEXACAFTOR\IVACAFTOR\TEZACAFTOR
     Dosage: 450 MILLIGRAM, QD (TOTAL OF ALL ACTIVE INGREDIENTS)
     Route: 064
     Dates: start: 202312, end: 202409
  53. ELEXACAFTOR\IVACAFTOR\TEZACAFTOR [Suspect]
     Active Substance: ELEXACAFTOR\IVACAFTOR\TEZACAFTOR
     Dosage: 450 MILLIGRAM, QD (TOTAL OF ALL ACTIVE INGREDIENTS)
     Dates: start: 202312, end: 202409
  54. ELEXACAFTOR\IVACAFTOR\TEZACAFTOR [Suspect]
     Active Substance: ELEXACAFTOR\IVACAFTOR\TEZACAFTOR
     Dosage: 450 MILLIGRAM, QD (TOTAL OF ALL ACTIVE INGREDIENTS)
     Dates: start: 202312, end: 202409
  55. ELEXACAFTOR\IVACAFTOR\TEZACAFTOR [Suspect]
     Active Substance: ELEXACAFTOR\IVACAFTOR\TEZACAFTOR
     Dosage: 450 MILLIGRAM, QD (TOTAL OF ALL ACTIVE INGREDIENTS)
     Route: 064
     Dates: start: 202312, end: 202409
  56. ELEXACAFTOR\IVACAFTOR\TEZACAFTOR [Suspect]
     Active Substance: ELEXACAFTOR\IVACAFTOR\TEZACAFTOR
     Dosage: 450 MILLIGRAM, QD (TOTAL OF ALL ACTIVE INGREDIENTS)
     Route: 064
     Dates: start: 202312, end: 202409
  57. SODIUM CHLORIDE [Suspect]
     Active Substance: SODIUM CHLORIDE
     Indication: Product used for unknown indication
     Dosage: UNK
  58. SODIUM CHLORIDE [Suspect]
     Active Substance: SODIUM CHLORIDE
     Dosage: UNK
     Route: 065
  59. SODIUM CHLORIDE [Suspect]
     Active Substance: SODIUM CHLORIDE
     Dosage: UNK
     Route: 065
  60. SODIUM CHLORIDE [Suspect]
     Active Substance: SODIUM CHLORIDE
     Dosage: UNK
  61. Mucoclear [Concomitant]
     Indication: Cystic fibrosis
     Dosage: UNK
     Dates: start: 202312, end: 202409
  62. Mucoclear [Concomitant]
     Dosage: UNK
     Dates: start: 202312, end: 202409
  63. Mucoclear [Concomitant]
     Dosage: UNK
     Route: 064
     Dates: start: 202312, end: 202409
  64. Mucoclear [Concomitant]
     Dosage: UNK
     Route: 064
     Dates: start: 202312, end: 202409
  65. Mucoclear [Concomitant]
     Dosage: UNK
     Dates: start: 202312, end: 202409
  66. Mucoclear [Concomitant]
     Dosage: UNK
     Dates: start: 202312, end: 202409
  67. Mucoclear [Concomitant]
     Dosage: UNK
     Route: 064
     Dates: start: 202312, end: 202409
  68. Mucoclear [Concomitant]
     Dosage: UNK
     Route: 064
     Dates: start: 202312, end: 202409
  69. PERTUSSIS VACCINE [Concomitant]
     Active Substance: PERTUSSIS VACCINE
     Indication: Immunisation
     Dosage: UNKNOWN WHEN APPLIED
  70. PERTUSSIS VACCINE [Concomitant]
     Active Substance: PERTUSSIS VACCINE
     Dosage: UNKNOWN WHEN APPLIED
  71. PERTUSSIS VACCINE [Concomitant]
     Active Substance: PERTUSSIS VACCINE
     Dosage: UNKNOWN WHEN APPLIED
     Route: 064
  72. PERTUSSIS VACCINE [Concomitant]
     Active Substance: PERTUSSIS VACCINE
     Dosage: UNKNOWN WHEN APPLIED
     Route: 064
  73. PERTUSSIS VACCINE [Concomitant]
     Active Substance: PERTUSSIS VACCINE
     Dosage: UNKNOWN WHEN APPLIED
  74. PERTUSSIS VACCINE [Concomitant]
     Active Substance: PERTUSSIS VACCINE
     Dosage: UNKNOWN WHEN APPLIED
  75. PERTUSSIS VACCINE [Concomitant]
     Active Substance: PERTUSSIS VACCINE
     Dosage: UNKNOWN WHEN APPLIED
     Route: 064
  76. PERTUSSIS VACCINE [Concomitant]
     Active Substance: PERTUSSIS VACCINE
     Dosage: UNKNOWN WHEN APPLIED
     Route: 064
  77. INFLUENZA VIRUS VACCINE [Concomitant]
     Active Substance: INFLUENZA VIRUS VACCINE
     Indication: Immunisation
     Dosage: UNKNOWN WHEN APPLIED
  78. INFLUENZA VIRUS VACCINE [Concomitant]
     Active Substance: INFLUENZA VIRUS VACCINE
     Dosage: UNKNOWN WHEN APPLIED
  79. INFLUENZA VIRUS VACCINE [Concomitant]
     Active Substance: INFLUENZA VIRUS VACCINE
     Dosage: UNKNOWN WHEN APPLIED
     Route: 064
  80. INFLUENZA VIRUS VACCINE [Concomitant]
     Active Substance: INFLUENZA VIRUS VACCINE
     Dosage: UNKNOWN WHEN APPLIED
     Route: 064
  81. INFLUENZA VIRUS VACCINE [Concomitant]
     Active Substance: INFLUENZA VIRUS VACCINE
     Dosage: UNKNOWN WHEN APPLIED
  82. INFLUENZA VIRUS VACCINE [Concomitant]
     Active Substance: INFLUENZA VIRUS VACCINE
     Dosage: UNKNOWN WHEN APPLIED
  83. INFLUENZA VIRUS VACCINE [Concomitant]
     Active Substance: INFLUENZA VIRUS VACCINE
     Dosage: UNKNOWN WHEN APPLIED
     Route: 064
  84. INFLUENZA VIRUS VACCINE [Concomitant]
     Active Substance: INFLUENZA VIRUS VACCINE
     Dosage: UNKNOWN WHEN APPLIED
     Route: 064
  85. FOLIC ACID [Concomitant]
     Active Substance: FOLIC ACID
     Indication: Vitamin supplementation
     Dosage: UNK, QD (1/DAY)
     Dates: start: 202312, end: 202409
  86. FOLIC ACID [Concomitant]
     Active Substance: FOLIC ACID
     Dosage: UNK, QD (1/DAY)
     Dates: start: 202312, end: 202409
  87. FOLIC ACID [Concomitant]
     Active Substance: FOLIC ACID
     Dosage: UNK, QD (1/DAY)
     Route: 064
     Dates: start: 202312, end: 202409
  88. FOLIC ACID [Concomitant]
     Active Substance: FOLIC ACID
     Dosage: UNK, QD (1/DAY)
     Route: 064
     Dates: start: 202312, end: 202409
  89. FOLIC ACID [Concomitant]
     Active Substance: FOLIC ACID
     Dosage: UNK, QD (1/DAY)
     Dates: start: 202312, end: 202409
  90. FOLIC ACID [Concomitant]
     Active Substance: FOLIC ACID
     Dosage: UNK, QD (1/DAY)
     Dates: start: 202312, end: 202409
  91. FOLIC ACID [Concomitant]
     Active Substance: FOLIC ACID
     Dosage: UNK, QD (1/DAY)
     Route: 064
     Dates: start: 202312, end: 202409
  92. FOLIC ACID [Concomitant]
     Active Substance: FOLIC ACID
     Dosage: UNK, QD (1/DAY)
     Route: 064
     Dates: start: 202312, end: 202409

REACTIONS (3)
  - Small for dates baby [Unknown]
  - Microcephaly [Unknown]
  - Foetal exposure during pregnancy [Unknown]

NARRATIVE: CASE EVENT DATE: 20240901
